FAERS Safety Report 4611463-0 (Version None)
Quarter: 2005Q1

REPORT INFORMATION
  Report Type: 
  Country: None (occurrence: None)
  Receive Date: 20050311
  Receipt Date: 20041115
  Transmission Date: 20050727
  Serious: No
  Sender: FDA-Public Use
  Company Number: 2004-BP-11993BP

PATIENT
  Age: 64 Year
  Sex: Female

DRUGS (8)
  1. SPIRIVA [Suspect]
     Indication: CHRONIC OBSTRUCTIVE PULMONARY DISEASE
     Dosage: 18 MCG (18 MCG), IH
     Route: 055
     Dates: start: 20040801
  2. PREDNISONE [Concomitant]
  3. ADVAIR DISKUS 100/50 [Concomitant]
  4. PREVACID [Concomitant]
  5. SYNTHROID [Concomitant]
  6. TOFRANIL [Concomitant]
  7. VALIUM [Concomitant]
  8. ENALAPRIL MALEATE [Concomitant]

REACTIONS (1)
  - FEELING HOT [None]
